FAERS Safety Report 4900419-6 (Version None)
Quarter: 2006Q1

REPORT INFORMATION
  Report Type: 
  Country: None (occurrence: None)
  Receive Date: 20060203
  Receipt Date: 20060122
  Transmission Date: 20060701
  Serious: Yes (Other)
  Sender: FDA-Public Use
  Company Number: EG-JNJFOC-20060200614

PATIENT
  Age: 20 Year
  Sex: Female

DRUGS (2)
  1. TOPAMAX [Suspect]
     Indication: HEADACHE
     Route: 048
  2. TEGRETOL [Concomitant]
     Indication: TEMPORAL LOBE EPILEPSY
     Route: 048

REACTIONS (2)
  - BLINDNESS [None]
  - MYOPIA [None]
